FAERS Safety Report 11201281 (Version 1)
Quarter: 2015Q2

REPORT INFORMATION
  Report Type: Report from Study
  Country: JP (occurrence: JP)
  Receive Date: 20150619
  Receipt Date: 20150619
  Transmission Date: 20150821
  Serious: Yes (Other)
  Sender: FDA-Public Use
  Company Number: PHHY2012JP061465

PATIENT
  Age: 41 Year
  Sex: Male

DRUGS (37)
  1. CLOZARIL [Suspect]
     Active Substance: CLOZAPINE
     Dosage: 100 MG,QD
     Route: 048
     Dates: start: 20120311, end: 20120312
  2. CLOZARIL [Suspect]
     Active Substance: CLOZAPINE
     Dosage: 150 MG,QD
     Route: 048
     Dates: start: 20120316, end: 20120318
  3. ZOTEPINE [Concomitant]
     Active Substance: ZOTEPINE
     Indication: SCHIZOPHRENIA, DISORGANISED TYPE
     Dosage: 400 MG, QD
     Route: 048
     Dates: end: 20110909
  4. ZOTEPINE [Concomitant]
     Active Substance: ZOTEPINE
     Dosage: 200 MG, QD
     Route: 048
     Dates: start: 20110910, end: 20120308
  5. CLOZARIL [Suspect]
     Active Substance: CLOZAPINE
     Dosage: 75 MG,QD
     Route: 048
     Dates: start: 20120309, end: 20120310
  6. CLOZARIL [Suspect]
     Active Substance: CLOZAPINE
     Dosage: 225 MG,QD
     Route: 048
     Dates: start: 20120326, end: 20120329
  7. RISPERIDONA WYNN [Concomitant]
     Dosage: 2 MG, QD
     Route: 048
     Dates: start: 20120311, end: 20120312
  8. CLOZARIL [Suspect]
     Active Substance: CLOZAPINE
     Dosage: 275 MG, QD
     Route: 048
     Dates: start: 20120413, end: 20120419
  9. RISPERIDONA WYNN [Concomitant]
     Dosage: 1 MG, QD
     Route: 048
     Dates: start: 20120313, end: 20120315
  10. CARBAMAZEPINE. [Concomitant]
     Active Substance: CARBAMAZEPINE
     Indication: SCHIZOPHRENIA, DISORGANISED TYPE
     Dosage: 400 MG, QD
     Route: 048
     Dates: start: 20080816, end: 20120322
  11. POTASSIUM ASPARTATE [Concomitant]
     Active Substance: POTASSIUM ASPARTATE
     Indication: PRODUCT USED FOR UNKNOWN INDICATION
     Dosage: 2400 MG, QD
     Route: 048
     Dates: start: 20080813
  12. CLOZARIL [Suspect]
     Active Substance: CLOZAPINE
     Dosage: 25 MG,QD
     Route: 048
     Dates: start: 20120303, end: 20120305
  13. CLOZARIL [Suspect]
     Active Substance: CLOZAPINE
     Dosage: 125 MG, QD
     Route: 048
     Dates: start: 20120313, end: 20120315
  14. CLOZARIL [Suspect]
     Active Substance: CLOZAPINE
     Dosage: 325 MG, QD
     Route: 048
     Dates: start: 20120427, end: 20120502
  15. CLOZARIL [Suspect]
     Active Substance: CLOZAPINE
     Dosage: 375 MG, QD
     Route: 048
     Dates: start: 20120508, end: 20120524
  16. CHLORPROMAZINE [Concomitant]
     Active Substance: CHLORPROMAZINE
     Indication: SCHIZOPHRENIA, DISORGANISED TYPE
     Dosage: 50 MG, QD
     Route: 048
     Dates: start: 20110522, end: 20120315
  17. HALOPERIDOL. [Concomitant]
     Active Substance: HALOPERIDOL
     Dosage: 4.5 MG,QD
     Route: 048
     Dates: start: 20120309, end: 20120318
  18. CLOZARIL [Suspect]
     Active Substance: CLOZAPINE
     Dosage: 300 MG, QD
     Route: 048
     Dates: start: 20120525, end: 20120602
  19. MAGMITT [Concomitant]
     Active Substance: MAGNESIUM OXIDE
     Indication: PRODUCT USED FOR UNKNOWN INDICATION
     Dosage: 1320 MG, QD
     Route: 048
     Dates: start: 20080808
  20. CLOZARIL [Suspect]
     Active Substance: CLOZAPINE
     Indication: SCHIZOPHRENIA, DISORGANISED TYPE
     Dosage: 12.5 MG, QD
     Route: 048
     Dates: start: 20120302, end: 20120302
  21. CLOZARIL [Suspect]
     Active Substance: CLOZAPINE
     Dosage: 50 MG, QD
     Route: 048
     Dates: start: 20120306, end: 20120308
  22. CLOZARIL [Suspect]
     Active Substance: CLOZAPINE
     Dosage: 200 MG, QD
     Route: 048
     Dates: start: 20120322, end: 20120325
  23. CLOZARIL [Suspect]
     Active Substance: CLOZAPINE
     Dosage: 300 MG, QD
     Route: 048
     Dates: start: 20120420, end: 20120426
  24. CLOZARIL [Suspect]
     Active Substance: CLOZAPINE
     Dosage: 350 MG, QD
     Route: 048
     Dates: start: 20120503, end: 20120507
  25. HALOPERIDOL. [Concomitant]
     Active Substance: HALOPERIDOL
     Dosage: 3 MG, QD
     Route: 048
     Dates: start: 20120319, end: 20120321
  26. HALOPERIDOL. [Concomitant]
     Active Substance: HALOPERIDOL
     Dosage: 1.5 MG, QD
     Route: 048
     Dates: start: 20120322, end: 20120324
  27. RISPERIDONA WYNN [Concomitant]
     Dosage: 4 MG, QD
     Route: 048
     Dates: start: 20120306, end: 20120310
  28. AKIRIDEN [Concomitant]
     Active Substance: BIPERIDEN
     Dosage: 2 MG, UNK
     Route: 048
     Dates: start: 20120330
  29. FLUNITRAZEPAM [Concomitant]
     Active Substance: FLUNITRAZEPAM
     Indication: SCHIZOPHRENIA, DISORGANISED TYPE
     Dosage: 1 MG, QD
     Route: 048
  30. CLOZARIL [Suspect]
     Active Substance: CLOZAPINE
     Dosage: 175 MG, QD
     Route: 048
     Dates: start: 20120319, end: 20120321
  31. FAMOTIDINE. [Concomitant]
     Active Substance: FAMOTIDINE
     Indication: PRODUCT USED FOR UNKNOWN INDICATION
     Dosage: 20 MG, QD
     Route: 048
     Dates: start: 20110506
  32. CLOZARIL [Suspect]
     Active Substance: CLOZAPINE
     Dosage: 250 MG,QD
     Route: 048
     Dates: start: 20120330, end: 20120412
  33. HALOPERIDOL. [Concomitant]
     Active Substance: HALOPERIDOL
     Indication: SCHIZOPHRENIA, DISORGANISED TYPE
     Dosage: 6 MG, QD
     Route: 048
     Dates: start: 20110522, end: 20120308
  34. RISPERIDONA WYNN [Concomitant]
     Indication: SCHIZOPHRENIA, DISORGANISED TYPE
     Dosage: 6 MG, QD
     Route: 048
     Dates: start: 20120302, end: 20120305
  35. AKIRIDEN [Concomitant]
     Active Substance: BIPERIDEN
     Indication: SCHIZOPHRENIA, DISORGANISED TYPE
     Dosage: 3 MG, QD
     Route: 048
     Dates: start: 20080821, end: 20120329
  36. CLONAZEPAM. [Concomitant]
     Active Substance: CLONAZEPAM
     Indication: SCHIZOPHRENIA, DISORGANISED TYPE
     Dosage: 0.5 MG, QD
     Route: 048
     Dates: start: 20110522, end: 20120526
  37. CLONAZEPAM. [Concomitant]
     Active Substance: CLONAZEPAM
     Dosage: 1 MG, QD
     Route: 048
     Dates: start: 20120527

REACTIONS (5)
  - Psychiatric symptom [Unknown]
  - Nausea [Not Recovered/Not Resolved]
  - Somnolence [Recovering/Resolving]
  - Diarrhoea [Recovering/Resolving]
  - Condition aggravated [Unknown]

NARRATIVE: CASE EVENT DATE: 20140602
